FAERS Safety Report 8482229-9 (Version None)
Quarter: 2012Q3

REPORT INFORMATION
  Report Type: 
  Country: None (occurrence: None)
  Receive Date: 20120702
  Receipt Date: 20120621
  Transmission Date: 20120928
  Serious: Yes (Other)
  Sender: FDA-Public Use
  Company Number: FR-ASTRAZENECA-2012SE41792

PATIENT
  Age: 47 Year
  Sex: Male

DRUGS (2)
  1. CLASTOBAN [Suspect]
     Route: 048
  2. CASODEX [Suspect]
     Indication: PROSTATE CANCER
     Route: 048

REACTIONS (2)
  - TENDON PAIN [None]
  - PERICARDITIS [None]
